FAERS Safety Report 24978142 (Version 1)
Quarter: 2025Q1

REPORT INFORMATION
  Report Type: Other
  Country: FR (occurrence: FR)
  Receive Date: 20250217
  Receipt Date: 20250217
  Transmission Date: 20250409
  Serious: Yes (Hospitalization)
  Sender: VISTAPHARM
  Company Number: FR-Vista Pharmaceuticals Inc.-2171222

PATIENT
  Age: 66 Year
  Sex: Male

DRUGS (3)
  1. SULFAMETHOXAZOLE\TRIMETHOPRIM [Suspect]
     Active Substance: SULFAMETHOXAZOLE\TRIMETHOPRIM
     Indication: Urinary tract infection
  2. LEVOFLOXACIN [Interacting]
     Active Substance: LEVOFLOXACIN
  3. CEFTRIAXONE [Interacting]
     Active Substance: CEFTRIAXONE

REACTIONS (2)
  - Mania [Recovered/Resolved]
  - Drug interaction [Unknown]
